FAERS Safety Report 6017253-9 (Version None)
Quarter: 2008Q4

REPORT INFORMATION
  Report Type: 
  Country: None (occurrence: None)
  Receive Date: 20081219
  Receipt Date: 20081204
  Transmission Date: 20090506
  Serious: Yes (Death)
  Sender: FDA-Public Use
  Company Number: A-CH2008-23067

PATIENT
  Age: 23 Month
  Sex: Male
  Weight: 8 kg

DRUGS (1)
  1. TRACLEER [Suspect]
     Indication: PULMONARY HYPERTENSION
     Dosage: ORAL
     Route: 048

REACTIONS (3)
  - HYPOXIA [None]
  - NO THERAPEUTIC RESPONSE [None]
  - TONIC CONVULSION [None]
